FAERS Safety Report 19906715 (Version 1)
Quarter: 2021Q4

REPORT INFORMATION
  Report Type: Spontaneous
  Country: US (occurrence: US)
  Receive Date: 20211001
  Receipt Date: 20211001
  Transmission Date: 20220303
  Serious: Yes (Hospitalization)
  Sender: FDA-Public Use
  Company Number: None

PATIENT
  Age: 72 Year
  Sex: Female
  Weight: 77 kg

DRUGS (4)
  1. REGEN-COV [Suspect]
     Active Substance: CASIRIVIMAB\IMDEVIMAB
     Indication: COVID-19
     Dosage: ?          OTHER FREQUENCY:ONE TIME;
     Route: 041
  2. Atorvastatin 20mg PO HS [Concomitant]
  3. Telmisartan-HCTZ 40/12.5mg PO Daily [Concomitant]
  4. Acetaminophen 975mg PO [Concomitant]

REACTIONS (4)
  - Headache [None]
  - Hypoaesthesia [None]
  - Vision blurred [None]
  - Migraine [None]

NARRATIVE: CASE EVENT DATE: 20210927
